FAERS Safety Report 13678792 (Version 1)
Quarter: 2017Q2

REPORT INFORMATION
  Report Type: Report from Study
  Country: CA (occurrence: CA)
  Receive Date: 20170622
  Receipt Date: 20170622
  Transmission Date: 20170830
  Serious: Yes (Other)
  Sender: FDA-Public Use
  Company Number: CA-GLAXOSMITHKLINE-CA2017GSK095472

PATIENT
  Sex: Male

DRUGS (5)
  1. AVODART [Concomitant]
     Active Substance: DUTASTERIDE
     Indication: PRODUCT USED FOR UNKNOWN INDICATION
     Dosage: UNK
  2. FLOVENT DISKUS [Suspect]
     Active Substance: FLUTICASONE PROPIONATE
     Indication: PRODUCT USED FOR UNKNOWN INDICATION
     Dosage: UNK
     Dates: start: 2012
  3. FLUTICASONE PROPIONATE+SALMETEROL XINAFOATE [Suspect]
     Active Substance: FLUTICASONE PROPIONATE\SALMETEROL XINAFOATE
     Indication: PRODUCT USED FOR UNKNOWN INDICATION
     Dosage: UNK
     Dates: start: 2012
  4. VENTOLIN [Suspect]
     Active Substance: ALBUTEROL SULFATE
     Indication: PRODUCT USED FOR UNKNOWN INDICATION
     Dosage: UNK
  5. SPIRIVA [Suspect]
     Active Substance: TIOTROPIUM BROMIDE MONOHYDRATE
     Indication: PRODUCT USED FOR UNKNOWN INDICATION
     Dosage: UNK
     Dates: start: 2012

REACTIONS (17)
  - Dyspnoea [Unknown]
  - Hilar lymphadenopathy [Unknown]
  - Asthma [Unknown]
  - Cough [Unknown]
  - Forced expiratory volume decreased [Unknown]
  - Hiatus hernia [Unknown]
  - Bronchiectasis [Unknown]
  - Nasal polyps [Unknown]
  - Productive cough [Unknown]
  - Dyspnoea exertional [Unknown]
  - Drug intolerance [Unknown]
  - Drug ineffective [Unknown]
  - Eosinophilia [Unknown]
  - Pulmonary hilum mass [Unknown]
  - Pulmonary vascular disorder [Unknown]
  - Bronchial wall thickening [Unknown]
  - Rhinitis [Unknown]
